FAERS Safety Report 4443168-3 (Version None)
Quarter: 2004Q3

REPORT INFORMATION
  Report Type: 
  Country: None (occurrence: None)
  Receive Date: 20040901
  Receipt Date: 20040821
  Transmission Date: 20050211
  Serious: Yes (Other)
  Sender: FDA-Public Use
  Company Number: 2004059024

PATIENT

DRUGS (6)
  1. NEURONTIN [Suspect]
     Indication: ARTHRITIS
     Dosage: 600 MG
  2. FENTANYL [Concomitant]
  3. IBUPROFEN [Concomitant]
  4. ROFECOXIB [Concomitant]
  5. HELIANTHUS TUBEROSUS [Concomitant]
  6. ALL OTHER THERAPEUTIC PRODUCTS [Concomitant]

REACTIONS (3)
  - ARTHRITIS [None]
  - KNEE ARTHROPLASTY [None]
  - OSTEOPOROSIS [None]
